FAERS Safety Report 10302705 (Version 1)
Quarter: 2014Q3

REPORT INFORMATION
  Report Type: Spontaneous
  Country: US (occurrence: US)
  Receive Date: 20140714
  Receipt Date: 20140714
  Transmission Date: 20150326
  Serious: No
  Sender: FDA-Public Use
  Company Number: US-BAUSCH-BL-2013-003590

PATIENT
  Age: 43 Year
  Sex: Male

DRUGS (3)
  1. BESIVANCE [Suspect]
     Active Substance: BESIFLOXACIN
     Indication: PRODUCT USED FOR UNKNOWN INDICATION
     Dosage: 1 GTT TID OD
     Route: 047
  2. TIMOLOL MALEATE/BRIMONIDINE TARTRATE [Concomitant]
     Dosage: 1 GTT BID OD
     Route: 047
  3. FLUOCINOLONE ACETONIDE INTRAVITREAL IMPLANT (0.5 MG) [Concomitant]
     Active Substance: FLUOCINOLONE ACETONIDE
     Route: 047
     Dates: start: 20090918

REACTIONS (1)
  - Eye irritation [Unknown]

NARRATIVE: CASE EVENT DATE: 20130408
